FAERS Safety Report 4373068-9 (Version None)
Quarter: 2004Q2

REPORT INFORMATION
  Report Type: 
  Country: None (occurrence: None)
  Receive Date: 20040526
  Receipt Date: 20040513
  Transmission Date: 20050107
  Serious: Yes (Life-Threatening, Hospitalization)
  Sender: FDA-Public Use
  Company Number: 2004031917

PATIENT
  Age: 44 Year
  Sex: Female

DRUGS (5)
  1. ZIPRASIDONE (CAPS) (ZIPRASIDONE) [Suspect]
     Indication: BIPOLAR DISORDER
     Dosage: ORAL
     Route: 048
  2. OLANZAPINE [Suspect]
     Indication: ILL-DEFINED DISORDER
     Dosage: ORAL
     Route: 048
  3. ANTIDEPRESSANTS (ANTIDEPRESSANTS) [Concomitant]
  4. LITHIUM CARBONATE [Concomitant]
  5. ANXIOLYTICS (ANXIOLYTICS) [Concomitant]

REACTIONS (1)
  - SUICIDE ATTEMPT [None]
